FAERS Safety Report 9325235 (Version 1)
Quarter: 2013Q2

REPORT INFORMATION
  Report Type: Spontaneous
  Country: GB (occurrence: GB)
  Receive Date: 20130604
  Receipt Date: 20130604
  Transmission Date: 20140414
  Serious: Yes (Hospitalization, Other)
  Sender: FDA-Public Use
  Company Number: GB-ABBOTT-13X-167-1096083-00

PATIENT
  Age: 72 Year
  Sex: Male

DRUGS (2)
  1. EPILIM [Suspect]
     Indication: EPILEPSY
     Dates: start: 2012
  2. LEVILEX [Suspect]
     Indication: EPILEPSY
     Route: 048
     Dates: start: 20130220, end: 20130501

REACTIONS (8)
  - Agitation [Recovering/Resolving]
  - Aggression [Recovering/Resolving]
  - Personality change [Recovering/Resolving]
  - Cognitive disorder [Recovering/Resolving]
  - Condition aggravated [Unknown]
  - Dementia with Lewy bodies [Unknown]
  - Vascular dementia [Unknown]
  - Extrapyramidal disorder [Unknown]
